FAERS Safety Report 8545574-4 (Version None)
Quarter: 2012Q3

REPORT INFORMATION
  Report Type: 
  Country: None (occurrence: None)
  Receive Date: 20120727
  Receipt Date: 20111026
  Transmission Date: 20120928
  Serious: No
  Sender: FDA-Public Use
  Company Number: US-ASTRAZENECA-2011SE64884

PATIENT
  Age: 74 Year
  Sex: Female
  Weight: 68 kg

DRUGS (6)
  1. SEROQUEL [Suspect]
     Indication: BIPOLAR DISORDER
     Route: 048
  2. WATER PILL [Concomitant]
  3. MILD TRANQUILIZER [Concomitant]
  4. TRILEPTAL [Concomitant]
  5. DEPAKOTE [Concomitant]
  6. SEROQUEL [Suspect]
     Indication: DEMENTIA
     Route: 048

REACTIONS (3)
  - INCORRECT DOSE ADMINISTERED [None]
  - INSOMNIA [None]
  - FATIGUE [None]
